FAERS Safety Report 24829071 (Version 4)
Quarter: 2025Q1

REPORT INFORMATION
  Report Type: Spontaneous
  Country: IT (occurrence: IT)
  Receive Date: 20250110
  Receipt Date: 20250321
  Transmission Date: 20250408
  Serious: Yes (Hospitalization, Other)
  Sender: AUROBINDO
  Company Number: IT-SA-2024SA372076

PATIENT
  Age: 63 Year
  Sex: Male
  Weight: 55 kg

DRUGS (15)
  1. OXALIPLATIN [Suspect]
     Active Substance: OXALIPLATIN
     Indication: HER2 positive colorectal cancer
     Route: 042
     Dates: start: 20240512, end: 20240512
  2. OXALIPLATIN [Suspect]
     Active Substance: OXALIPLATIN
     Indication: Neoplasm malignant
     Route: 042
     Dates: start: 20241205, end: 20241205
  3. LEVOLEUCOVORIN [Suspect]
     Active Substance: LEVOLEUCOVORIN
     Indication: HER2 positive colorectal cancer
     Route: 042
     Dates: start: 20241205, end: 20241205
  4. LEVOLEUCOVORIN [Suspect]
     Active Substance: LEVOLEUCOVORIN
     Indication: Neoplasm malignant
  5. LOPERAMIDE [Suspect]
     Active Substance: LOPERAMIDE
     Indication: HER2 positive colorectal cancer
     Dosage: 4 MILLIGRAM, 3 TIMES A DAY
     Route: 048
     Dates: start: 20241205, end: 20241210
  6. LOPERAMIDE [Suspect]
     Active Substance: LOPERAMIDE
     Indication: Prophylaxis against diarrhoea
  7. TUCATINIB [Suspect]
     Active Substance: TUCATINIB
     Indication: HER2 positive colorectal cancer
     Dosage: 600 MILLIGRAM, ONCE A DAY
     Route: 048
     Dates: start: 20241119, end: 20241210
  8. TUCATINIB [Suspect]
     Active Substance: TUCATINIB
     Indication: Neoplasm malignant
  9. FLUOROURACIL [Suspect]
     Active Substance: FLUOROURACIL
     Indication: HER2 positive colorectal cancer
     Route: 042
     Dates: start: 20241205, end: 20241205
  10. FLUOROURACIL [Suspect]
     Active Substance: FLUOROURACIL
     Indication: Neoplasm malignant
     Route: 042
     Dates: start: 20241205, end: 20241207
  11. LEUCOVORIN CALCIUM [Suspect]
     Active Substance: LEUCOVORIN CALCIUM
     Indication: Product used for unknown indication
     Route: 042
     Dates: start: 20241205, end: 20241205
  12. TRASTUZUMAB [Suspect]
     Active Substance: TRASTUZUMAB
     Indication: Neoplasm malignant
     Route: 065
     Dates: start: 20241120, end: 20241120
  13. PANTOPRAZOLE [Concomitant]
     Active Substance: PANTOPRAZOLE
     Indication: Product used for unknown indication
     Route: 065
     Dates: start: 20240708
  14. ENOXAPARIN SODIUM [Concomitant]
     Active Substance: ENOXAPARIN SODIUM
     Indication: Large intestine anastomosis
     Route: 065
     Dates: start: 20241111
  15. ACETAMINOPHEN [Concomitant]
     Active Substance: ACETAMINOPHEN
     Indication: Large intestine anastomosis
     Route: 065
     Dates: start: 20241111

REACTIONS (7)
  - Syncope [Recovered/Resolved]
  - Electrocardiogram ST-T segment abnormal [Unknown]
  - Treatment noncompliance [Unknown]
  - Off label use [Unknown]
  - General physical health deterioration [Unknown]
  - Diarrhoea [Recovering/Resolving]
  - Drug intolerance [Unknown]

NARRATIVE: CASE EVENT DATE: 20241205
